FAERS Safety Report 9524940 (Version 2)
Quarter: 2013Q3

REPORT INFORMATION
  Report Type: Spontaneous
  Country: CA (occurrence: CA)
  Receive Date: 20130916
  Receipt Date: 20130924
  Transmission Date: 20140515
  Serious: Yes (Death, Hospitalization)
  Sender: FDA-Public Use
  Company Number: CA-PFIZER INC-2013263994

PATIENT
  Age: 31 Year
  Sex: Male

DRUGS (2)
  1. MORPHINE SULFATE [Suspect]
     Dosage: UNK
  2. COCAINE [Suspect]
     Dosage: UNK

REACTIONS (3)
  - Overdose [Fatal]
  - Cardiac arrest [Fatal]
  - Myoclonus [Unknown]
